FAERS Safety Report 7815494-9 (Version None)
Quarter: 2011Q4

REPORT INFORMATION
  Report Type: 
  Country: None (occurrence: None)
  Receive Date: 20111005
  Receipt Date: 20110930
  Transmission Date: 20120403
  Serious: Yes (Hospitalization)
  Sender: FDA-Public Use
  Company Number: 2011029900

PATIENT
  Sex: Female
  Weight: 62.5964 kg

DRUGS (15)
  1. SYMBICORT 80 (BUDESONIDE W/FORMOTEROL FUMARATE) [Concomitant]
  2. DOXEPIN HCL [Concomitant]
  3. PRILOSEC [Concomitant]
  4. MULTIVITAMIN (DAILY MULTIVITAMIN) [Concomitant]
  5. PROVENTIL [Concomitant]
  6. VALIUM [Concomitant]
  7. ZANAFLEX [Concomitant]
  8. ZEMAIRA [Suspect]
     Indication: ALPHA-1 ANTI-TRYPSIN DEFICIENCY
     Dosage: 60 MG/KG 1/WEEK, INFUSED AT A RATE OF 0.08 ML/KG/MIN (4.7 ML/MIN) INTRAVENOUS, INTRAVENOUS
     Route: 042
     Dates: start: 20110922
  9. ZEMAIRA [Suspect]
     Indication: CHRONIC OBSTRUCTIVE PULMONARY DISEASE
     Dosage: 60 MG/KG 1/WEEK, INFUSED AT A RATE OF 0.08 ML/KG/MIN (4.7 ML/MIN) INTRAVENOUS, INTRAVENOUS
     Route: 042
     Dates: start: 20110922
  10. ZEMAIRA [Suspect]
     Indication: ALPHA-1 ANTI-TRYPSIN DEFICIENCY
     Dosage: 60 MG/KG 1/WEEK, INFUSED AT A RATE OF 0.08 ML/KG/MIN (4.7 ML/MIN) INTRAVENOUS, INTRAVENOUS
     Route: 042
     Dates: start: 20110607
  11. ZEMAIRA [Suspect]
     Indication: CHRONIC OBSTRUCTIVE PULMONARY DISEASE
     Dosage: 60 MG/KG 1/WEEK, INFUSED AT A RATE OF 0.08 ML/KG/MIN (4.7 ML/MIN) INTRAVENOUS, INTRAVENOUS
     Route: 042
     Dates: start: 20110607
  12. SODIUM CHLORIDE 0.9% [Concomitant]
  13. ALLEGRA [Concomitant]
  14. PERCOCET [Concomitant]
  15. PROZAC [Concomitant]

REACTIONS (23)
  - SPUTUM PURULENT [None]
  - CHILLS [None]
  - FATIGUE [None]
  - HEART RATE INCREASED [None]
  - OBSTRUCTIVE AIRWAYS DISORDER [None]
  - BLOOD PH DECREASED [None]
  - EMPHYSEMA [None]
  - OROPHARYNGEAL PAIN [None]
  - DYSPNOEA [None]
  - PYREXIA [None]
  - COUGH [None]
  - CONDITION AGGRAVATED [None]
  - PNEUMONIA [None]
  - PULMONARY CONGESTION [None]
  - RHONCHI [None]
  - WHEEZING [None]
  - MIDDLE INSOMNIA [None]
  - BLOOD PRESSURE DECREASED [None]
  - CHRONIC SINUSITIS [None]
  - CHRONIC OBSTRUCTIVE PULMONARY DISEASE [None]
  - DEPRESSION [None]
  - PAIN [None]
  - INCREASED UPPER AIRWAY SECRETION [None]
